FAERS Safety Report 19084925 (Version 2)
Quarter: 2021Q2

REPORT INFORMATION
  Report Type: Spontaneous
  Country: CA (occurrence: CA)
  Receive Date: 20210401
  Receipt Date: 20210422
  Transmission Date: 20210717
  Serious: Yes (Other)
  Sender: FDA-Public Use
  Company Number: CA-PFIZER INC-2021344250

PATIENT
  Sex: Female

DRUGS (9)
  1. METHOTREXATE SODIUM. [Suspect]
     Active Substance: METHOTREXATE SODIUM
     Route: 065
  2. HUMIRA [Suspect]
     Active Substance: ADALIMUMAB
     Indication: RHEUMATOID ARTHRITIS
     Route: 058
  3. CELEBREX [Concomitant]
     Active Substance: CELECOXIB
  4. HYDROXYCHLOROQUINE [Concomitant]
     Active Substance: HYDROXYCHLOROQUINE
  5. SIMPONI [Suspect]
     Active Substance: GOLIMUMAB
     Dosage: UNK
     Route: 065
  6. MORPHINE [Concomitant]
     Active Substance: MORPHINE
     Route: 065
  7. BENZYLPENICILLIN POTASSIUM/BENZYLPENICILLIN SODIUM [Suspect]
     Active Substance: BENETHAMINE PENICILLIN\PENICILLIN G SODIUM
     Dosage: UNK
     Route: 065
  8. ENBREL [Suspect]
     Active Substance: ETANERCEPT
     Dosage: UNK
     Route: 065
  9. XELJANZ [Concomitant]
     Active Substance: TOFACITINIB CITRATE
     Indication: RHEUMATOID ARTHRITIS
     Dosage: 5 MG, 2X/DAY
     Route: 048

REACTIONS (14)
  - Drug hypersensitivity [Unknown]
  - Fatigue [Unknown]
  - Colitis [Unknown]
  - Joint range of motion decreased [Unknown]
  - Nausea [Unknown]
  - Injection site pain [Unknown]
  - Joint swelling [Unknown]
  - Therapeutic product effect incomplete [Unknown]
  - Chills [Unknown]
  - Dermatitis allergic [Unknown]
  - Feeling hot [Unknown]
  - Headache [Unknown]
  - Myalgia [Unknown]
  - Osteoarthritis [Unknown]
